FAERS Safety Report 17749154 (Version 2)
Quarter: 2020Q2

REPORT INFORMATION
  Report Type: Spontaneous
  Country: IN (occurrence: IN)
  Receive Date: 20200506
  Receipt Date: 20200514
  Transmission Date: 20200714
  Serious: Yes (Death, Life-Threatening, Other)
  Sender: FDA-Public Use
  Company Number: IN-BRISTOL-MYERS SQUIBB COMPANY-BMS-2020-036076

PATIENT
  Age: 78 Year
  Sex: Male

DRUGS (1)
  1. OPDYTA [Suspect]
     Active Substance: NIVOLUMAB
     Indication: METASTATIC RENAL CELL CARCINOMA
     Dosage: 240 MILLIGRAM IN 160 ML NORMAL SALINE
     Route: 042
     Dates: start: 20191007, end: 20200416

REACTIONS (1)
  - Ventricular arrhythmia [Fatal]

NARRATIVE: CASE EVENT DATE: 20200416
